FAERS Safety Report 14187064 (Version 1)
Quarter: 2017Q4

REPORT INFORMATION
  Report Type: Spontaneous
  Country: US (occurrence: US)
  Receive Date: 20171113
  Receipt Date: 20171113
  Transmission Date: 20180321
  Serious: Yes (Disabling)
  Sender: FDA-Public Use
  Company Number: None

PATIENT
  Sex: Female
  Weight: 99 kg

DRUGS (1)
  1. VICTOZA [Suspect]
     Active Substance: LIRAGLUTIDE
     Indication: WEIGHT ABNORMAL
     Route: 058
     Dates: start: 20161120, end: 20170720

REACTIONS (3)
  - Lymphadenopathy [None]
  - Diffuse large B-cell lymphoma [None]
  - Therapy cessation [None]

NARRATIVE: CASE EVENT DATE: 20170808
